FAERS Safety Report 9615879 (Version 1)
Quarter: 2013Q4

REPORT INFORMATION
  Report Type: Spontaneous
  Country: US (occurrence: US)
  Receive Date: 20131011
  Receipt Date: 20131011
  Transmission Date: 20140711
  Serious: No
  Sender: FDA-Public Use
  Company Number: US-PURDUE-USA-2013-0098812

PATIENT
  Sex: Male

DRUGS (3)
  1. BUTRANS [Suspect]
     Indication: PAIN
     Dosage: 10 MCG, UNK
     Route: 062
     Dates: start: 201207, end: 20130210
  2. DICLOFENAC                         /00372302/ [Concomitant]
     Indication: PRODUCT USED FOR UNKNOWN INDICATION
     Dosage: 75 MG, BID
     Route: 048
  3. NAPROXEN                           /00256202/ [Concomitant]
     Indication: PAIN
     Dosage: 500 MG, PRN
     Route: 048

REACTIONS (3)
  - Furuncle [Not Recovered/Not Resolved]
  - Application site rash [Not Recovered/Not Resolved]
  - Product adhesion issue [Not Recovered/Not Resolved]
